FAERS Safety Report 7434193-9 (Version None)
Quarter: 2011Q2

REPORT INFORMATION
  Report Type: 
  Country: None (occurrence: None)
  Receive Date: 20110425
  Receipt Date: 20110418
  Transmission Date: 20111010
  Serious: No
  Sender: FDA-Public Use
  Company Number: US-PFIZER INC-2011085034

PATIENT
  Sex: Female
  Weight: 82.993 kg

DRUGS (13)
  1. NORVASC [Concomitant]
     Indication: HYPERTENSION
     Dosage: UNK
  2. LANSOPRAZOLE [Concomitant]
     Indication: GASTROOESOPHAGEAL REFLUX DISEASE
     Dosage: UNK
  3. NICOTROL [Suspect]
     Indication: SMOKING CESSATION THERAPY
     Dosage: UNK
     Dates: start: 20110412
  4. SYMBICORT [Concomitant]
     Dosage: UNK
     Route: 055
  5. SPIRIVA [Concomitant]
     Dosage: UNK
     Route: 055
  6. KLOR-CON [Concomitant]
     Dosage: UNK
  7. LEXAPRO [Concomitant]
     Indication: DEPRESSION
     Dosage: UNK
  8. FEXOFENADINE [Concomitant]
     Dosage: UNK
  9. PROVENTIL GENTLEHALER [Concomitant]
     Dosage: UNK
     Route: 055
  10. MAXZIDE [Concomitant]
     Dosage: UNK
  11. RISPERDAL [Concomitant]
     Dosage: UNK
  12. MONTELUKAST [Concomitant]
     Dosage: UNK
  13. ACETYLSALICYLIC ACID [Concomitant]
     Dosage: 81 MG, UNK

REACTIONS (1)
  - CHEST DISCOMFORT [None]
